FAERS Safety Report 13009569 (Version 2)
Quarter: 2018Q3

REPORT INFORMATION
  Report Type: Spontaneous
  Country: US (occurrence: US)
  Receive Date: 20161208
  Receipt Date: 20180717
  Transmission Date: 20181010
  Serious: Yes (Other)
  Sender: FDA-Public Use
  Company Number: US-009507513-1611USA013908

PATIENT
  Age: 0 Day
  Sex: Male
  Weight: .96 kg

DRUGS (8)
  1. ETRAVIRINE [Suspect]
     Active Substance: ETRAVIRINE
     Dosage: TOTAL DAILY DOSE: 400
     Route: 064
  2. ATAZANAVIR. [Suspect]
     Active Substance: ATAZANAVIR SULFATE
     Dosage: TOTAL DAILY DOSE: 300
     Route: 064
  3. COBICISTAT [Suspect]
     Active Substance: COBICISTAT
     Dosage: TOTAL DAILY DOSE: 150
     Route: 064
  4. EMTRICITABINE (+) RILPIVIRINE HYDROCHLORIDE (+) TENOFOVIR DISOPROXIL F [Suspect]
     Active Substance: EMTRICITABINE\RILPIVIRINE HYDROCHLORIDE\TENOFOVIR DISOPROXIL FUMARATE
     Dosage: TOTAL DAILY DOSE: 1
     Route: 064
  5. DOLUTEGRAVIR [Suspect]
     Active Substance: DOLUTEGRAVIR
     Dosage: TOTAL DAILY DOSE: 50
     Route: 064
  6. ISENTRESS [Suspect]
     Active Substance: RALTEGRAVIR POTASSIUM
     Dosage: TOTAL DAILY DOSE: 800
     Route: 064
  7. EMTRICITABINE (+) TENOFOVIR DISOPROXIL FUMARATE [Suspect]
     Active Substance: EMTRICITABINE\TENOFOVIR DISOPROXIL
     Dosage: TOTAL DAILY DOSE: 1
     Route: 064
  8. ENFUVIRTIDE. [Suspect]
     Active Substance: ENFUVIRTIDE
     Dosage: TOTAL DAILY DOSE: 180
     Route: 064

REACTIONS (3)
  - Foetal exposure during pregnancy [Recovered/Resolved]
  - Premature baby [Unknown]
  - Low birth weight baby [Unknown]

NARRATIVE: CASE EVENT DATE: 20151212
